APPROVED DRUG PRODUCT: ANHYDRON
Active Ingredient: CYCLOTHIAZIDE
Strength: 2MG
Dosage Form/Route: TABLET;ORAL
Application: N013157 | Product #002
Applicant: ELI LILLY AND CO
Approved: Approved Prior to Jan 1, 1982 | RLD: No | RS: No | Type: DISCN